FAERS Safety Report 6091613-2 (Version None)
Quarter: 2009Q1

REPORT INFORMATION
  Report Type: 
  Country: None (occurrence: None)
  Receive Date: 20090225
  Receipt Date: 20080226
  Transmission Date: 20090719
  Serious: No
  Sender: FDA-Public Use
  Company Number: A0711926A

PATIENT

DRUGS (1)
  1. VALTREX [Suspect]
     Indication: ANTIVIRAL PROPHYLAXIS

REACTIONS (2)
  - DRUG INEFFECTIVE [None]
  - GENITAL HERPES [None]
